FAERS Safety Report 8862106 (Version 1)
Quarter: 2012Q4

REPORT INFORMATION
  Report Type: 
  Country: US (occurrence: US)
  Receive Date: 20121026
  Receipt Date: 20121026
  Transmission Date: 20130627
  Serious: Yes (Death, Other)
  Sender: FDA-Public Use
  Company Number: US-SANOFI-AVENTIS-2012SA078286

PATIENT
  Sex: Male

DRUGS (2)
  1. PLAVIX [Suspect]
     Route: 048
     Dates: start: 200501
  2. ASPIRIN [Suspect]
     Route: 065
     Dates: start: 200501

REACTIONS (3)
  - Death [Fatal]
  - Haemorrhage [Unknown]
  - Myocardial infarction [Unknown]
